FAERS Safety Report 5484194-5 (Version None)
Quarter: 2007Q4

REPORT INFORMATION
  Report Type: 
  Country: None (occurrence: None)
  Receive Date: 20071009
  Receipt Date: 20071009
  Transmission Date: 20080405
  Serious: No
  Sender: FDA-Public Use
  Company Number: None

PATIENT
  Age: 85 Year
  Sex: Male

DRUGS (1)
  1. AVANDIA [Suspect]

REACTIONS (8)
  - BLADDER CANCER [None]
  - CARDIAC TAMPONADE [None]
  - HEART RATE IRREGULAR [None]
  - METASTATIC NEOPLASM [None]
  - MYOCARDIAL INFARCTION [None]
  - PERICARDIAL EFFUSION [None]
  - PULMONARY OEDEMA [None]
  - SUDDEN DEATH [None]
